FAERS Safety Report 8661749 (Version 2)
Quarter: 2012Q4

REPORT INFORMATION
  Report Type: 
  Country: ES (occurrence: ES)
  Receive Date: 20120712
  Receipt Date: 20121107
  Transmission Date: 20130627
  Serious: Yes (Hospitalization, Other)
  Sender: FDA-Public Use
  Company Number: ES-ELI_LILLY_AND_COMPANY-ES201207001008

PATIENT
  Sex: Male

DRUGS (2)
  1. FORSTEO [Suspect]
     Dosage: UNK
     Dates: start: 20110202
  2. FORSTEO [Suspect]
     Dosage: UNK
     Dates: start: 20110202

REACTIONS (6)
  - Respiratory tract infection [Unknown]
  - Respiratory failure [Unknown]
  - Pulmonary fibrosis [Unknown]
  - Dementia Alzheimer^s type [Unknown]
  - Inflammation [Unknown]
  - Injection site haematoma [Unknown]
